FAERS Safety Report 25218481 (Version 1)
Quarter: 2025Q2

REPORT INFORMATION
  Report Type: Spontaneous
  Country: RU (occurrence: RU)
  Receive Date: 20250421
  Receipt Date: 20250421
  Transmission Date: 20250717
  Serious: Yes (Other)
  Sender: RANBAXY
  Company Number: RU-SUN PHARMACEUTICAL INDUSTRIES LTD-2025R1-503209

PATIENT
  Age: 73 Year
  Sex: Male

DRUGS (3)
  1. LIDOCAINE [Suspect]
     Active Substance: LIDOCAINE
     Indication: Product used for unknown indication
     Route: 042
     Dates: start: 20250329
  2. PROCAINE [Suspect]
     Active Substance: PROCAINE
     Indication: Product used for unknown indication
     Route: 065
     Dates: start: 20250329
  3. IOPROMIDE [Suspect]
     Active Substance: IOPROMIDE
     Indication: Product used for unknown indication
     Route: 065
     Dates: start: 20250329

REACTIONS (3)
  - Asphyxia [Recovering/Resolving]
  - Hyperaemia [Recovering/Resolving]
  - Blood pressure decreased [Recovering/Resolving]
